FAERS Safety Report 7414574-X (Version None)
Quarter: 2011Q2

REPORT INFORMATION
  Report Type: 
  Country: None (occurrence: None)
  Receive Date: 20110414
  Receipt Date: 20110405
  Transmission Date: 20111010
  Serious: Yes (Other)
  Sender: FDA-Public Use
  Company Number: JP-BRISTOL-MYERS SQUIBB COMPANY-15660004

PATIENT

DRUGS (1)
  1. TAXOL [Suspect]

REACTIONS (1)
  - VIITH NERVE PARALYSIS [None]
